FAERS Safety Report 16978807 (Version 1)
Quarter: 2019Q4

REPORT INFORMATION
  Report Type: Spontaneous
  Country: CH (occurrence: CH)
  Receive Date: 20191031
  Receipt Date: 20191031
  Transmission Date: 20200122
  Serious: Yes (Hospitalization, Other)
  Sender: FDA-Public Use
  Company Number: CH-PFIZER INC-2019462331

PATIENT
  Age: 72 Year
  Sex: Female

DRUGS (14)
  1. MADOPAR [Interacting]
     Active Substance: BENSERAZIDE HYDROCHLORIDE\LEVODOPA
     Dosage: 62.5 MG, 1X/DAY
     Route: 048
     Dates: start: 20180613, end: 20180701
  2. XANAX [Suspect]
     Active Substance: ALPRAZOLAM
     Dosage: 0.25 MG, 2X/DAY
     Route: 048
     Dates: start: 20180705
  3. LAXOBERON [Concomitant]
     Active Substance: SODIUM PICOSULFATE
     Dosage: UNK, AS NEEDED
     Dates: start: 20180626
  4. LUVIT D3 [Concomitant]
     Active Substance: CHOLECALCIFEROL
     Dosage: 800 IU, DAILY
     Route: 048
     Dates: start: 20180524
  5. NITROFURANTOINE [Concomitant]
     Active Substance: NITROFURANTOIN
     Dosage: IN TOTAL
     Dates: start: 20180815, end: 20180815
  6. METRONIDAZOLE. [Concomitant]
     Active Substance: METRONIDAZOLE
     Dates: start: 20180817, end: 20180818
  7. CITALOPRAM [Interacting]
     Active Substance: CITALOPRAM HYDROBROMIDE
     Dosage: 20 MG, 1X/DAY
     Route: 048
     Dates: start: 20180802
  8. MADOPAR [Interacting]
     Active Substance: BENSERAZIDE HYDROCHLORIDE\LEVODOPA
     Indication: TREMOR
     Dosage: 31.25 MG, 1X/DAY
     Route: 048
     Dates: start: 20180606, end: 20180612
  9. CITALOPRAM [Interacting]
     Active Substance: CITALOPRAM HYDROBROMIDE
     Dosage: 30 MG, 1X/DAY
     Route: 048
     Dates: start: 20180619, end: 20180710
  10. CITALOPRAM [Interacting]
     Active Substance: CITALOPRAM HYDROBROMIDE
     Dosage: 40 MG, 1X/DAY
     Route: 048
     Dates: start: 20180710, end: 20180802
  11. LAMOTRIGINE. [Concomitant]
     Active Substance: LAMOTRIGINE
     Dosage: 75 MG, UNK
     Dates: start: 201806
  12. MADOPAR [Interacting]
     Active Substance: BENSERAZIDE HYDROCHLORIDE\LEVODOPA
     Dosage: 100/25MG, 4X/DAY
     Route: 048
     Dates: start: 20180702
  13. ARIPIPRAZOLE. [Concomitant]
     Active Substance: ARIPIPRAZOLE
     Dosage: 5 MG, UNK
     Dates: start: 201706
  14. CEFTRIAXONE. [Concomitant]
     Active Substance: CEFTRIAXONE
     Dates: start: 20180815, end: 20180824

REACTIONS (5)
  - Hepatitis [Recovered/Resolved]
  - Drug interaction [Unknown]
  - Escherichia urinary tract infection [Unknown]
  - Liver injury [Recovered/Resolved]
  - Antidepressant drug level above therapeutic [Recovered/Resolved]

NARRATIVE: CASE EVENT DATE: 20180720
